FAERS Safety Report 8923159 (Version 1)
Quarter: 2012Q4

REPORT INFORMATION
  Report Type: Spontaneous
  Country: IT (occurrence: None)
  Receive Date: 20121109
  Receipt Date: 20121109
  Transmission Date: 20130627
  Serious: Yes (Other)
  Sender: FDA-Public Use
  Company Number: 2011S1000658

PATIENT

DRUGS (7)
  1. CUBICIN [Suspect]
     Indication: FEVER
     Route: 042
  2. CUBICIN [Suspect]
     Indication: MUSCLE ABSCESS
     Route: 042
  3. PEGINTERFERON ALFA-2A [Suspect]
     Indication: FEVER
  4. PEGINTERFERON ALFA-2A [Suspect]
     Indication: MUSCLE ABSCESS
  5. RIBAVIRIN [Suspect]
  6. LEVOFLOXACIN [Concomitant]
  7. PIPERACILLIN SODIUM W/TAZOBACTAM SODIUM [Concomitant]

REACTIONS (7)
  - Rhabdomyolysis [None]
  - Drug administration error [None]
  - Muscle abscess [None]
  - Blood lactate dehydrogenase increased [None]
  - Leukocytosis [None]
  - Platelet count decreased [None]
  - Staphylococcal infection [None]
